FAERS Safety Report 4957708-9 (Version None)
Quarter: 2006Q1

REPORT INFORMATION
  Report Type: 
  Country: None (occurrence: None)
  Receive Date: 20060324
  Receipt Date: 20060310
  Transmission Date: 20060701
  Serious: Yes (Other)
  Sender: FDA-Public Use
  Company Number: LTI2006A00070

PATIENT
  Age: 55 Year
  Sex: Female

DRUGS (1)
  1. ACTOS [Suspect]
     Indication: DIABETES MELLITUS NON-INSULIN-DEPENDENT
     Dosage: 1 DF (1 DF, 1 IN 1 D)
     Route: 048

REACTIONS (3)
  - MACULAR OEDEMA [None]
  - VISUAL ACUITY REDUCED [None]
  - WEIGHT INCREASED [None]
